FAERS Safety Report 11377049 (Version 1)
Quarter: 2015Q3

REPORT INFORMATION
  Report Type: Spontaneous
  Country: US (occurrence: US)
  Receive Date: 20150813
  Receipt Date: 20150813
  Transmission Date: 20151125
  Serious: No
  Sender: FDA-Public Use
  Company Number: US-B.I. PHARMACEUTICALS,INC./RIDGEFIELD-2015-BI-41646BP

PATIENT
  Sex: Male
  Weight: 109 kg

DRUGS (13)
  1. PRADAXA [Suspect]
     Active Substance: DABIGATRAN ETEXILATE MESYLATE
     Indication: ATRIAL FIBRILLATION
     Dosage: 300 MG
     Route: 048
     Dates: start: 20130513
  2. FISH OIL [Concomitant]
     Active Substance: FISH OIL
     Indication: CARDIOVASCULAR EVENT PROPHYLAXIS
     Dosage: 4000 MG
     Route: 048
     Dates: start: 20120401
  3. CALCIUM CARBONATE. [Concomitant]
     Active Substance: CALCIUM CARBONATE
     Indication: OSTEOPOROSIS
     Dosage: 1200 MG
     Route: 048
     Dates: start: 20120401
  4. COLACE [Concomitant]
     Active Substance: DOCUSATE SODIUM
     Indication: FAECES HARD
  5. NIACIN. [Concomitant]
     Active Substance: NIACIN
     Indication: ANTICOAGULANT THERAPY
     Dosage: 500 MG
     Route: 048
     Dates: start: 20140131
  6. LIPITOR [Concomitant]
     Active Substance: ATORVASTATIN CALCIUM
     Indication: CARDIOVASCULAR EVENT PROPHYLAXIS
     Dosage: 5 MG
     Route: 048
     Dates: start: 20140131
  7. FISH OIL [Concomitant]
     Active Substance: FISH OIL
     Indication: ROUTINE HEALTH MAINTENANCE
  8. AMLODIPINE [Concomitant]
     Active Substance: AMLODIPINE BESYLATE
     Indication: CARDIOVASCULAR EVENT PROPHYLAXIS
     Dosage: 5 MG
     Route: 048
     Dates: start: 20140131
  9. RANITIDINE [Concomitant]
     Active Substance: RANITIDINE\RANITIDINE HYDROCHLORIDE
     Indication: GASTROOESOPHAGEAL REFLUX DISEASE
     Dosage: 300 MG
     Route: 048
     Dates: start: 20120614
  10. BENICAR HCT [Concomitant]
     Active Substance: HYDROCHLOROTHIAZIDE\OLMESARTAN MEDOXOMIL
     Indication: FLUID RETENTION
     Dosage: STRENGTH: 40/25 MG; DAILY DOSE: 40/25 MG
     Route: 048
     Dates: start: 20140131
  11. METFORMIN [Concomitant]
     Active Substance: METFORMIN HYDROCHLORIDE
     Indication: TYPE 2 DIABETES MELLITUS
     Dosage: 500 MG
     Route: 048
     Dates: start: 20140130
  12. ASPIRIN. [Concomitant]
     Active Substance: ASPIRIN
     Indication: CARDIOVASCULAR EVENT PROPHYLAXIS
     Dosage: 81 MG
     Route: 048
     Dates: start: 20120401
  13. COLACE [Concomitant]
     Active Substance: DOCUSATE SODIUM
     Indication: CONSTIPATION
     Dosage: 50 MG
     Route: 048
     Dates: start: 20130124

REACTIONS (1)
  - Scratch [Recovered/Resolved]

NARRATIVE: CASE EVENT DATE: 2014
